FAERS Safety Report 6939098-5 (Version None)
Quarter: 2010Q3

REPORT INFORMATION
  Report Type: 
  Country: None (occurrence: None)
  Receive Date: 20100824
  Receipt Date: 20100815
  Transmission Date: 20110219
  Serious: Yes (Hospitalization, Other)
  Sender: FDA-Public Use
  Company Number: US-AMGEN-KDL431541

PATIENT
  Sex: Female

DRUGS (1)
  1. ENBREL [Suspect]
     Indication: PSORIASIS
     Route: 058
     Dates: start: 20040225

REACTIONS (4)
  - DIZZINESS [None]
  - INTERVERTEBRAL DISC PROTRUSION [None]
  - MIDDLE EAR EFFUSION [None]
  - PSORIASIS [None]
